FAERS Safety Report 7189446-9 (Version None)
Quarter: 2010Q4

REPORT INFORMATION
  Report Type: 
  Country: None (occurrence: None)
  Receive Date: 20101223
  Receipt Date: 20101214
  Transmission Date: 20110411
  Serious: Yes (Other)
  Sender: FDA-Public Use
  Company Number: BR-AMGEN-BRASP2010010518

PATIENT

DRUGS (13)
  1. ENBREL [Suspect]
     Indication: RHEUMATOID ARTHRITIS
     Dosage: 50 MG 1X/WK
     Route: 058
     Dates: start: 20100903
  2. METHOTREXATE SODIUM [Suspect]
     Dosage: 15 MG, WEEKLY
  3. METHOTREXATE SODIUM [Suspect]
     Dosage: 12.5 MG, WEEKLY
  4. PREDNISOLONE SODIUM PHOSPHATE [Suspect]
     Dosage: 5 MG, UNK
  5. BROMAZEPAM [Concomitant]
     Dosage: UNK
     Dates: start: 20100901
  6. FOLIC ACID [Concomitant]
     Dosage: UNKNOWN DOSE, FOUR TIMES A WEEK
     Dates: start: 20020101
  7. MODURETIC 5-50 [Concomitant]
     Indication: HYPERTENSION
     Dosage: 25 MG, 1X/DAY
     Dates: start: 20040101
  8. OMEPRAZOLE [Concomitant]
  9. SINVACOR [Concomitant]
     Dosage: 20 MG, UNK
     Dates: start: 20080101
  10. NAPROSYN [Concomitant]
     Dosage: 500 MG, 2X/DAY
     Dates: start: 20020101
  11. VALIUM [Concomitant]
  12. PREDNISOLONE [Concomitant]
  13. METHOTREXATE [Concomitant]

REACTIONS (9)
  - BONE PAIN [None]
  - DIARRHOEA [None]
  - DRUG INEFFECTIVE [None]
  - FEELING OF DESPAIR [None]
  - HEADACHE [None]
  - MIGRAINE [None]
  - OEDEMA PERIPHERAL [None]
  - SCOLIOSIS [None]
  - SOMNOLENCE [None]
